FAERS Safety Report 13490330 (Version 2)
Quarter: 2017Q2

REPORT INFORMATION
  Report Type: Spontaneous
  Country: PL (occurrence: PL)
  Receive Date: 20170427
  Receipt Date: 20170516
  Transmission Date: 20170830
  Serious: Yes (Life-Threatening)
  Sender: FDA-Public Use
  Company Number: PL-AKORN PHARMACEUTICALS-2017AKN00490

PATIENT
  Age: 14 Year
  Sex: Male

DRUGS (4)
  1. CLINDACNE [Concomitant]
     Route: 065
  2. ISOTRETINOIN [Suspect]
     Active Substance: ISOTRETINOIN
     Indication: ACNE
     Dosage: 20 MG, 1X/DAY IN THE MORNING
     Route: 048
     Dates: start: 20150210, end: 20150305
  3. NORMACLIN [Concomitant]
     Route: 065
  4. U NSPECIFIED ANXIETY MEDICATION [Concomitant]
     Indication: ANXIETY
     Route: 065

REACTIONS (1)
  - Suicidal ideation [Recovered/Resolved]

NARRATIVE: CASE EVENT DATE: 201502
